FAERS Safety Report 16088672 (Version 1)
Quarter: 2019Q1

REPORT INFORMATION
  Report Type: Spontaneous
  Country: US (occurrence: US)
  Receive Date: 20190319
  Receipt Date: 20190319
  Transmission Date: 20190418
  Serious: No
  Sender: FDA-Public Use
  Company Number: US-PFIZER INC-2019116128

PATIENT
  Age: 33 Year
  Sex: Male

DRUGS (1)
  1. SERTRALINE HCL [Suspect]
     Active Substance: SERTRALINE HYDROCHLORIDE
     Dosage: UNK

REACTIONS (6)
  - Irritability [Unknown]
  - Drug intolerance [Unknown]
  - Tremor [Unknown]
  - Condition aggravated [Unknown]
  - Anxiety [Unknown]
  - Drug hypersensitivity [Unknown]
